FAERS Safety Report 24081200 (Version 1)
Quarter: 2024Q3

REPORT INFORMATION
  Report Type: Spontaneous
  Country: US (occurrence: US)
  Receive Date: 20240711
  Receipt Date: 20240711
  Transmission Date: 20241016
  Serious: No
  Sender: KRAMER LABORATORIES
  Company Number: US-KRAMERLABS-2024-US-018046

PATIENT
  Age: 48 Year
  Sex: Male

DRUGS (3)
  1. NIZORAL [Suspect]
     Active Substance: KETOCONAZOLE
     Indication: Product used for unknown indication
     Route: 061
  2. CLOBETASOL CREAM 0.05 PERCENT [Concomitant]
  3. HYDROCORTISONE [Concomitant]
     Active Substance: HYDROCORTISONE\HYDROCORTISONE ACETATE

REACTIONS (1)
  - Drug ineffective [Unknown]
